FAERS Safety Report 24570500 (Version 3)
Quarter: 2024Q4

REPORT INFORMATION
  Report Type: Spontaneous
  Country: HR (occurrence: HR)
  Receive Date: 20241031
  Receipt Date: 20241115
  Transmission Date: 20250114
  Serious: No
  Sender: BAYER HEALTHCARE PHARMACEUTICALS INC.
  Company Number: HR-BAYER-2024A153205

PATIENT
  Age: 65 Year
  Sex: Male
  Weight: 85 kg

DRUGS (14)
  1. FINERENONE [Suspect]
     Active Substance: FINERENONE
     Indication: Chronic kidney disease
     Dosage: 10 MG
  2. FINERENONE [Suspect]
     Active Substance: FINERENONE
     Indication: Type 2 diabetes mellitus
  3. FINERENONE [Suspect]
     Active Substance: FINERENONE
     Indication: Diabetic nephropathy
  4. FINERENONE [Suspect]
     Active Substance: FINERENONE
     Indication: Hypertension
  5. INSULIN GLARGINE-AGLR [Concomitant]
     Active Substance: INSULIN GLARGINE-AGLR
  6. GLIQUIDONE [Concomitant]
     Active Substance: GLIQUIDONE
  7. NEBIVOLOL [Concomitant]
     Active Substance: NEBIVOLOL
     Dosage: 5 MG
  8. PERINDOPRILARGININ SERVIER [Concomitant]
  9. THIOCTIC ACID [Concomitant]
     Active Substance: THIOCTIC ACID
     Dosage: 600 MG
  10. LERCANIDIPINE HYDROCHLORIDE [Concomitant]
     Active Substance: LERCANIDIPINE HYDROCHLORIDE
     Dosage: 20 MG
  11. TELMISARTAN [Concomitant]
     Active Substance: TELMISARTAN
     Dosage: 160 MG
  12. Moxonidine Akrihin [Concomitant]
     Dosage: 0.2 MG
  13. TORSEMIDE [Concomitant]
     Active Substance: TORSEMIDE
     Dosage: 10 MG
  14. DAPAGLIFLOZIN [Concomitant]
     Active Substance: DAPAGLIFLOZIN
     Dosage: 10 MG

REACTIONS (3)
  - Blood creatinine increased [None]
  - Glomerular filtration rate decreased [None]
  - Blood potassium increased [None]
